FAERS Safety Report 6743543-8 (Version None)
Quarter: 2010Q2

REPORT INFORMATION
  Report Type: 
  Country: None (occurrence: None)
  Receive Date: 20100527
  Receipt Date: 20100514
  Transmission Date: 20101027
  Serious: Yes (Death, Other)
  Sender: FDA-Public Use
  Company Number: JP-ROCHE-672995

PATIENT
  Sex: Male
  Weight: 40 kg

DRUGS (12)
  1. AVASTIN [Suspect]
     Indication: COLON CANCER METASTATIC
     Route: 041
     Dates: start: 20090926
  2. ELPLAT [Concomitant]
     Route: 041
     Dates: start: 20090826
  3. FLUOROURACIL [Concomitant]
     Route: 040
     Dates: start: 20090826
  4. FLUOROURACIL [Concomitant]
     Dosage: ROUTE REPORTED AS ^INTRAVENOUS DRIP^.
     Route: 040
     Dates: start: 20090826
  5. LEUCOVORIN CALCIUM [Concomitant]
     Route: 041
     Dates: start: 20090826
  6. DECADRON [Concomitant]
  7. GRANISETRON [Concomitant]
     Dates: start: 20090826
  8. FAMOTIDINE [Concomitant]
     Dosage: ROUTE REPORTED AS ^INTRAVENOUS (NOT OTHERWISE SPECIFIED)^.
     Route: 042
     Dates: start: 20090826
  9. FAMOTIDINE [Concomitant]
     Route: 048
     Dates: start: 20090801, end: 20091209
  10. CALCICOL [Concomitant]
     Dosage: ROUTE REPORTED AS ^INTRAVENOUS (NOT OTHERWISE SPECIFIED)^.
     Route: 042
     Dates: start: 20090826
  11. CALCICOL [Concomitant]
     Route: 042
  12. MAGNESIUM SULFATE [Concomitant]
     Dosage: DRUG NAME: CONCLYTE-MG.  ROUTE REPORTED AS ^INTRAVENOUS (NOT OTHERWISE SPECIFIED)^.
     Route: 042
     Dates: start: 20090826

REACTIONS (5)
  - DISSEMINATED INTRAVASCULAR COAGULATION [None]
  - LARGE INTESTINE PERFORATION [None]
  - MULTI-ORGAN FAILURE [None]
  - SEPSIS [None]
  - STOMATITIS [None]
